FAERS Safety Report 14160763 (Version 1)
Quarter: 2017Q4

REPORT INFORMATION
  Report Type: Spontaneous
  Country: US (occurrence: US)
  Receive Date: 20171103
  Receipt Date: 20171103
  Transmission Date: 20180321
  Serious: Yes (Other)
  Sender: FDA-Public Use
  Company Number: None

PATIENT
  Age: 33 Year
  Sex: Female
  Weight: 52.29 kg

DRUGS (1)
  1. BUPRENORPHINE/NALOXONE TABLETS [Suspect]
     Active Substance: BUPRENORPHINE\NALOXONE
     Indication: DRUG DEPENDENCE
     Route: 060
     Dates: start: 20170728, end: 20171103

REACTIONS (14)
  - Gingivitis [None]
  - Wrong technique in product usage process [None]
  - Dental caries [None]
  - Condition aggravated [None]
  - Malabsorption from administration site [None]
  - Administration site ulcer [None]
  - Administration site inflammation [None]
  - Dry mouth [None]
  - Oral pain [None]
  - Mucosal inflammation [None]
  - Product substitution issue [None]
  - Eating disorder [None]
  - Incorrect dose administered [None]
  - Tooth injury [None]

NARRATIVE: CASE EVENT DATE: 20171103
